FAERS Safety Report 19201389 (Version 1)
Quarter: 2021Q2

REPORT INFORMATION
  Report Type: Spontaneous
  Country: US (occurrence: US)
  Receive Date: 20210430
  Receipt Date: 20210430
  Transmission Date: 20210717
  Serious: No
  Sender: FDA-Public Use
  Company Number: US-SA-2021SA142144

PATIENT
  Age: 67 Year
  Sex: Male
  Weight: 97.51 kg

DRUGS (2)
  1. ZYTIGA [Concomitant]
     Active Substance: ABIRATERONE ACETATE
  2. DUPIXENT [Suspect]
     Active Substance: DUPILUMAB
     Indication: DERMATITIS ATOPIC
     Dosage: 300 MG, QOW
     Route: 058
     Dates: start: 202010

REACTIONS (3)
  - Condition aggravated [Not Recovered/Not Resolved]
  - Skin disorder [Not Recovered/Not Resolved]
  - Skin lesion [Not Recovered/Not Resolved]
